FAERS Safety Report 6151365-4 (Version None)
Quarter: 2009Q2

REPORT INFORMATION
  Report Type: 
  Country: None (occurrence: None)
  Receive Date: 20090410
  Receipt Date: 20090331
  Transmission Date: 20091009
  Serious: No
  Sender: FDA-Public Use
  Company Number: US-JNJFOC-20090400338

PATIENT
  Sex: Female
  Weight: 105.69 kg

DRUGS (18)
  1. FENTANYL TRANSDERMAL SYSTEM [Suspect]
     Route: 062
  2. FENTANYL TRANSDERMAL SYSTEM [Suspect]
     Indication: INTERVERTEBRAL DISC DEGENERATION
     Route: 062
  3. HUMULIN R [Concomitant]
     Route: 058
  4. HUMULIN R [Concomitant]
     Indication: DIABETES MELLITUS
     Route: 058
  5. PRISOLEC [Concomitant]
     Indication: GASTROOESOPHAGEAL REFLUX DISEASE
     Route: 048
  6. AMITRIPTYLINE HCL [Concomitant]
     Indication: NEUROPATHY PERIPHERAL
     Route: 048
  7. ATENOLOL [Concomitant]
     Route: 048
  8. ATENOLOL [Concomitant]
     Indication: CARDIAC DISORDER
     Route: 048
  9. PLENDIL [Concomitant]
     Indication: HYPERTENSION
     Route: 048
  10. CYCLOBENZAPRINE [Concomitant]
     Route: 048
  11. PRAVACHOL [Concomitant]
     Indication: BLOOD CHOLESTEROL INCREASED
     Route: 048
  12. LEVOTHYROXINE SODIUM [Concomitant]
     Indication: THYROID DISORDER
     Route: 048
  13. PLAVIX [Concomitant]
     Indication: CARDIAC DISORDER
     Route: 048
  14. FEXOFENADINE [Concomitant]
     Route: 048
  15. ISOSORBIDE [Concomitant]
     Indication: CARDIAC DISORDER
     Route: 048
  16. FUROSEMIDE [Concomitant]
     Indication: CARDIAC DISORDER
     Route: 048
  17. PROTONIX [Concomitant]
     Indication: GASTROOESOPHAGEAL REFLUX DISEASE
     Route: 048
  18. OMEPRAZOLE [Concomitant]
     Indication: GASTROOESOPHAGEAL REFLUX DISEASE
     Route: 048

REACTIONS (3)
  - INADEQUATE ANALGESIA [None]
  - INAPPROPRIATE SCHEDULE OF DRUG ADMINISTRATION [None]
  - INCORRECT ROUTE OF DRUG ADMINISTRATION [None]
